FAERS Safety Report 9264850 (Version 1)
Quarter: 2013Q2

REPORT INFORMATION
  Report Type: Report from Study
  Country: BR (occurrence: BR)
  Receive Date: 20130501
  Receipt Date: 20130501
  Transmission Date: 20140414
  Serious: Yes (Disabling, Other)
  Sender: FDA-Public Use
  Company Number: PHHY2013BR041918

PATIENT
  Sex: Male

DRUGS (1)
  1. RITALIN LA [Suspect]
     Indication: ATTENTION DEFICIT/HYPERACTIVITY DISORDER
     Dosage: UNK UKN, (1 OR 2 CAPSULES DAILY)
     Dates: start: 201304

REACTIONS (7)
  - Paralysis [Recovered/Resolved]
  - Furuncle [Recovered/Resolved]
  - Mass [Recovered/Resolved]
  - Pain in extremity [Recovered/Resolved]
  - Decreased immune responsiveness [Recovered/Resolved]
  - Nasopharyngitis [Recovered/Resolved]
  - Pyrexia [Recovered/Resolved]
